FAERS Safety Report 9993237 (Version 2)
Quarter: 2014Q1

REPORT INFORMATION
  Report Type: Spontaneous
  Country: US (occurrence: US)
  Receive Date: 20140310
  Receipt Date: 20140318
  Transmission Date: 20141002
  Serious: No
  Sender: FDA-Public Use
  Company Number: US-ASTRAZENECA-2014SE00785

PATIENT
  Age: 48 Year
  Sex: Female
  Weight: 74.8 kg

DRUGS (5)
  1. NEXIUM [Suspect]
     Indication: DYSPEPSIA
     Route: 048
     Dates: start: 201309, end: 20131229
  2. NEXIUM [Suspect]
     Indication: GASTROOESOPHAGEAL REFLUX DISEASE
     Route: 048
     Dates: start: 201309, end: 20131229
  3. NEXIUM [Suspect]
     Indication: DYSPEPSIA
     Route: 048
     Dates: end: 20140103
  4. NEXIUM [Suspect]
     Indication: GASTROOESOPHAGEAL REFLUX DISEASE
     Route: 048
     Dates: end: 20140103
  5. WELLBUTRIN [Concomitant]
     Indication: DEPRESSION
     Route: 048

REACTIONS (12)
  - Condition aggravated [Unknown]
  - Hypophagia [Unknown]
  - Parosmia [Not Recovered/Not Resolved]
  - Paranoia [Unknown]
  - Sinus disorder [Unknown]
  - Vitreous floaters [Not Recovered/Not Resolved]
  - Weight decreased [Unknown]
  - Overweight [Unknown]
  - Ageusia [Not Recovered/Not Resolved]
  - Dysgeusia [Not Recovered/Not Resolved]
  - Dysgeusia [Unknown]
  - Drug dose omission [Not Recovered/Not Resolved]
